FAERS Safety Report 8846775 (Version 1)
Quarter: 2012Q4

REPORT INFORMATION
  Report Type: Spontaneous
  Country: US (occurrence: None)
  Receive Date: 20121016
  Receipt Date: 20121016
  Transmission Date: 20130627
  Serious: Yes (Other)
  Sender: FDA-Public Use
  Company Number: DSU-2012-08111

PATIENT
  Age: 90 Year
  Sex: Female
  Weight: 62.14 kg

DRUGS (5)
  1. AZOR (OLMESARTAN MEDOXOMIL, AMLODIPINE BESILATE) (TABLET) (OLMESARTAN MEDOXOMIL, AMLODIPINE BESILATE) [Suspect]
     Indication: HYPERTENSION
     Route: 048
     Dates: start: 2010
  2. WATER PILL [Suspect]
     Indication: EDEMA PERIPHERAL
     Route: 048
     Dates: start: 2010
  3. METOPROLOL (METOPROLOL) [Concomitant]
  4. DOXAZOSIN (DOXAZOSIN) [Concomitant]
  5. ASPIRIN (ACETYLSALICYLIC ACID) [Concomitant]

REACTIONS (10)
  - Fall [None]
  - Spinal fracture [None]
  - Joint swelling [None]
  - Swelling [None]
  - Pollakiuria [None]
  - Pneumonia [None]
  - Leukopenia [None]
  - Body height decreased [None]
  - Weight decreased [None]
  - Feeling abnormal [None]
